FAERS Safety Report 4606998-0 (Version None)
Quarter: 2005Q1

REPORT INFORMATION
  Report Type: 
  Country: None (occurrence: None)
  Receive Date: 20050310
  Receipt Date: 20050225
  Transmission Date: 20050727
  Serious: Yes (Other)
  Sender: FDA-Public Use
  Company Number: 2005039411

PATIENT
  Age: 61 Year
  Sex: Female

DRUGS (3)
  1. CELEBREX [Suspect]
     Indication: ARTHRALGIA
  2. TIKOSYN [Suspect]
     Indication: HEART RATE IRREGULAR
     Dosage: (1 IN 1 D), UNKNOWN
     Dates: start: 20040101
  3. WARFARIN SODIUM [Concomitant]

REACTIONS (5)
  - COUGH [None]
  - GASTRIC DISORDER [None]
  - HEART RATE INCREASED [None]
  - HEART RATE IRREGULAR [None]
  - SINUS DISORDER [None]
